FAERS Safety Report 18682938 (Version 1)
Quarter: 2020Q4

REPORT INFORMATION
  Report Type: Spontaneous
  Country: IN (occurrence: IN)
  Receive Date: 20201230
  Receipt Date: 20201230
  Transmission Date: 20210114
  Serious: Yes (Other)
  Sender: FDA-Public Use
  Company Number: PHBS1995IN03686

PATIENT
  Age: 45 Year
  Sex: Male

DRUGS (7)
  1. LAMPREN [Suspect]
     Active Substance: CLOFAZIMINE
     Dosage: 100 MG, Q48H
     Route: 048
  2. RIFAMPICIN [Suspect]
     Active Substance: RIFAMPIN
     Indication: LEPROMATOUS LEPROSY
     Dosage: UNK
     Route: 048
  3. DAPSONE. [Suspect]
     Active Substance: DAPSONE
     Indication: LEPROMATOUS LEPROSY
     Dosage: 100 MG, QD
     Route: 048
  4. IBUPROFEN. [Concomitant]
     Active Substance: IBUPROFEN
     Indication: PRODUCT USED FOR UNKNOWN INDICATION
     Dosage: 400 MG, QD
     Route: 048
  5. LAMPREN [Suspect]
     Active Substance: CLOFAZIMINE
     Indication: LEPROMATOUS LEPROSY
     Dosage: 100 MG, QD
     Route: 048
  6. LAMPREN [Suspect]
     Active Substance: CLOFAZIMINE
     Dosage: 100 MG, QD
     Route: 048
  7. LAMPREN [Suspect]
     Active Substance: CLOFAZIMINE
     Dosage: 200 MG, QD
     Route: 048

REACTIONS (1)
  - Diaphragmatic paralysis [Unknown]

NARRATIVE: CASE EVENT DATE: 19880509
